FAERS Safety Report 9485609 (Version 2)
Quarter: 2013Q3

REPORT INFORMATION
  Report Type: Spontaneous
  Country: US (occurrence: US)
  Receive Date: 20130829
  Receipt Date: 20130902
  Transmission Date: 20140515
  Serious: Yes (Life-Threatening, Other)
  Sender: FDA-Public Use
  Company Number: US-ROCHE-1265668

PATIENT
  Sex: Female
  Weight: 47.7 kg

DRUGS (10)
  1. PERJETA [Suspect]
     Indication: BREAST CANCER METASTATIC
     Route: 042
     Dates: start: 20130822
  2. ALOXI [Concomitant]
     Indication: PREMEDICATION
     Route: 042
     Dates: start: 20130822
  3. DEXAMETHASONE [Concomitant]
     Indication: PREMEDICATION
     Route: 042
     Dates: start: 20130822
  4. SIMVASTATIN [Concomitant]
     Dosage: HS
     Route: 065
  5. LEVOTHYROXINE [Concomitant]
     Dosage: 1 DAY
     Route: 065
  6. CITALOPRAM [Concomitant]
     Dosage: 1 DAY
     Route: 065
  7. ASPIRIN [Concomitant]
     Dosage: 1 DAY
     Route: 065
  8. PRILOSEC [Concomitant]
     Dosage: 1 DAY
     Route: 065
  9. PERCOCET [Concomitant]
     Indication: PAIN
     Dosage: IN MG
     Route: 065
  10. TAXOTERE [Concomitant]
     Indication: BREAST CANCER
     Route: 042
     Dates: start: 20130822

REACTIONS (4)
  - Chest discomfort [Not Recovered/Not Resolved]
  - Hypoxia [Not Recovered/Not Resolved]
  - Chest pain [Recovering/Resolving]
  - Investigation abnormal [Recovering/Resolving]
